FAERS Safety Report 4459670-4 (Version None)
Quarter: 2004Q3

REPORT INFORMATION
  Report Type: 
  Country: None (occurrence: None)
  Receive Date: 20040923
  Receipt Date: 20040923
  Transmission Date: 20050211
  Serious: Yes (Hospitalization)
  Sender: FDA-Public Use
  Company Number: None

PATIENT
  Sex: Male
  Weight: 91.5 kg

DRUGS (13)
  1. TAXOTERE [Suspect]
     Indication: PROSTATE CANCER METASTATIC
     Dosage: 36MG/M2  QWK  INTRAVENOUS
     Route: 042
     Dates: start: 20040401, end: 20040826
  2. DEXAMETHASONE [Suspect]
     Indication: PROSTATE CANCER METASTATIC
     Dosage: 0.75MG  BID  ORAL
     Route: 048
     Dates: start: 20040331, end: 20040922
  3. ALLOPURINOL [Concomitant]
  4. MULTI-VITAMIN [Concomitant]
  5. VITAMIN C [Concomitant]
  6. SELENIUM TRACE METAL ADDITIVE [Concomitant]
  7. VITAMIN B COMPLEX CAP [Concomitant]
  8. GARLIC [Concomitant]
  9. GLYBURIDE [Concomitant]
  10. IRON [Concomitant]
  11. ZINC [Concomitant]
  12. MAGNESIUM [Concomitant]
  13. LYCOP [Concomitant]

REACTIONS (1)
  - DEEP VEIN THROMBOSIS [None]
